FAERS Safety Report 20999501 (Version 1)
Quarter: 2022Q2

REPORT INFORMATION
  Report Type: Report from Study
  Country: US (occurrence: US)
  Receive Date: 20220623
  Receipt Date: 20220623
  Transmission Date: 20220720
  Serious: Yes (Hospitalization, Other)
  Sender: FDA-Public Use
  Company Number: US-CC-90009-AML-002-1041001-20210419-0004SG

PATIENT
  Age: 81 Year
  Sex: Female
  Weight: 48 kg

DRUGS (34)
  1. AZACITIDINE [Suspect]
     Active Substance: AZACITIDINE
     Indication: Acute myeloid leukaemia
     Dosage: STUDY THERAPY WAS HELD DUE TO SAE
     Route: 058
     Dates: start: 20210312, end: 20210312
  2. AZACITIDINE [Suspect]
     Active Substance: AZACITIDINE
     Route: 058
     Dates: start: 20210416, end: 20210416
  3. AZACITIDINE [Suspect]
     Active Substance: AZACITIDINE
     Route: 058
     Dates: start: 20210417, end: 20210417
  4. AZACITIDINE [Suspect]
     Active Substance: AZACITIDINE
     Route: 058
     Dates: start: 20210421, end: 20210421
  5. VENETOCLAX [Suspect]
     Active Substance: VENETOCLAX
     Indication: Acute myeloid leukaemia
     Dosage: STUDY THERAPY WAS HELD DUE TO SAE
     Route: 048
     Dates: start: 20210312, end: 20210312
  6. VENETOCLAX [Suspect]
     Active Substance: VENETOCLAX
     Route: 048
     Dates: start: 20210412, end: 20210414
  7. PROTONIX [Concomitant]
     Active Substance: PANTOPRAZOLE SODIUM
     Indication: Gastrooesophageal reflux disease
     Route: 042
     Dates: start: 20210321, end: 20210329
  8. ZOVIRAX [Concomitant]
     Active Substance: ACYCLOVIR
     Indication: Prophylaxis
     Dosage: 180 MG X 1 X 12 HOURS
     Route: 042
     Dates: start: 20210321, end: 20210323
  9. ZYLOPRIM [Concomitant]
     Active Substance: ALLOPURINOL
     Indication: Prophylaxis
     Dosage: 300 MG X 1 X 1 DAYS
     Route: 048
     Dates: start: 20210310, end: 20210324
  10. OSCAL [Concomitant]
     Active Substance: CALCIUM CARBONATE
     Indication: Mineral supplementation
     Dosage: 1250 MG X 3 X 1 DAYS
     Route: 048
     Dates: start: 20210312
  11. VITAMIN D [Concomitant]
     Active Substance: VITAMIN D NOS
     Indication: Prophylaxis
     Dosage: 1000 IU X 1 X 1 DAYS
     Route: 048
     Dates: start: 20210312
  12. LEVAQUIN [Concomitant]
     Active Substance: LEVOFLOXACIN
     Indication: Prophylaxis
     Dosage: 500 MG X 1 X 1 DAYS
     Route: 048
     Dates: start: 20210308
  13. LEVAQUIN [Concomitant]
     Active Substance: LEVOFLOXACIN
     Route: 048
     Dates: start: 20210308
  14. EMLA [Concomitant]
     Active Substance: LIDOCAINE\PRILOCAINE
     Indication: Catheter site pain
     Dosage: 25 G X 1 X 1 DAYS
     Route: 061
     Dates: start: 20210104
  15. OXYBUTYNIN (DITROPAN) [Concomitant]
     Indication: Pollakiuria
     Dosage: 5 MG X 3 X 1 DAYS
     Dates: start: 20210310, end: 20210324
  16. VFEND [Concomitant]
     Active Substance: VORICONAZOLE
     Indication: Prophylaxis
     Dosage: 200 MG X 1 X 12 HOURS
     Route: 048
     Dates: start: 20210501
  17. ALUMINUM-MAGNESIUM HYDROXIDE-SIMETHICONE [Concomitant]
     Indication: Gastrooesophageal reflux disease
     Route: 048
     Dates: start: 20210321, end: 20210416
  18. COLACE [Concomitant]
     Active Substance: DOCUSATE SODIUM
     Indication: Constipation
     Route: 048
     Dates: start: 20210313, end: 20210413
  19. CETYLPYRIDINIUM CHLORIDE [Concomitant]
     Active Substance: CETYLPYRIDINIUM CHLORIDE
     Indication: Dry mouth
     Route: 048
     Dates: start: 20210321, end: 20210405
  20. PEPCID [Concomitant]
     Active Substance: FAMOTIDINE
     Indication: Gastrooesophageal reflux disease
     Route: 042
     Dates: start: 20210415, end: 20210415
  21. ENULOSE [Concomitant]
     Active Substance: LACTULOSE
     Indication: Constipation
     Route: 048
     Dates: start: 20210414, end: 20210419
  22. PREVACID [Concomitant]
     Active Substance: LANSOPRAZOLE
     Indication: Gastrooesophageal reflux disease
     Route: 048
     Dates: start: 20210330, end: 20210404
  23. PREVACID [Concomitant]
     Active Substance: LANSOPRAZOLE
     Route: 048
     Dates: start: 20210503
  24. SYNTHROID [Concomitant]
     Active Substance: LEVOTHYROXINE SODIUM
     Route: 048
     Dates: start: 20210327
  25. MIRALAX [Concomitant]
     Active Substance: POLYETHYLENE GLYCOL 3350
     Indication: Constipation
     Route: 048
     Dates: start: 20210304
  26. DELTASONE [Concomitant]
     Active Substance: PREDNISONE
     Indication: Acute febrile neutrophilic dermatosis
     Route: 048
     Dates: start: 20210330, end: 20210408
  27. COMPAZINE [Concomitant]
     Active Substance: PROCHLORPERAZINE MALEATE
     Indication: Nausea
     Dosage: 5-10 MG
     Route: 048
     Dates: start: 20210318
  28. CALCIUM CHLORIDE\SODIUM CHLORIDE\SODIUM PHOSPHATE, DIBASIC, ANHYDROUS\ [Concomitant]
     Active Substance: CALCIUM CHLORIDE\SODIUM CHLORIDE\SODIUM PHOSPHATE, DIBASIC, ANHYDROUS\SODIUM PHOSPHATE, MONOBASIC, A
     Indication: Dry mouth
     Route: 048
     Dates: start: 20210410, end: 20210410
  29. ZOSYN [Concomitant]
     Active Substance: PIPERACILLIN SODIUM\TAZOBACTAM SODIUM
     Indication: Sepsis
     Route: 042
     Dates: start: 20210324, end: 20210405
  30. LOPRESSOR [Concomitant]
     Active Substance: METOPROLOL TARTRATE
     Indication: Syncope
     Route: 048
     Dates: start: 20210418
  31. LIDODERM [Concomitant]
     Active Substance: LIDOCAINE
     Indication: Cellulitis
     Dosage: 1 PATCH
     Route: 061
     Dates: start: 20210320, end: 20210401
  32. LIDODERM [Concomitant]
     Active Substance: LIDOCAINE
     Indication: Pain
  33. ROBITUSSIN (GUAIFENESIN) [Concomitant]
     Active Substance: GUAIFENESIN
     Indication: Nasal congestion
     Route: 048
     Dates: start: 20210312, end: 20210323
  34. ZOFRAN [Concomitant]
     Active Substance: ONDANSETRON HYDROCHLORIDE
     Indication: Nausea
     Route: 048
     Dates: start: 20210316, end: 20210326

REACTIONS (1)
  - Sepsis [Recovered/Resolved]

NARRATIVE: CASE EVENT DATE: 20210416
